FAERS Safety Report 6441488-4 (Version None)
Quarter: 2009Q4

REPORT INFORMATION
  Report Type: 
  Country: None (occurrence: None)
  Receive Date: 20091116
  Receipt Date: 20091106
  Transmission Date: 20100525
  Serious: Yes (Other)
  Sender: FDA-Public Use
  Company Number: B0495446A

PATIENT
  Age: 50 Year
  Sex: Male

DRUGS (4)
  1. ROSIGLITAZONE [Suspect]
  2. RIMONABANT [Suspect]
     Indication: OBESITY
     Route: 048
     Dates: start: 20070511, end: 20070701
  3. METFORMIN HCL [Concomitant]
  4. GLICLAZIDE [Concomitant]
     Indication: DIABETES MELLITUS

REACTIONS (5)
  - CARDIAC MURMUR [None]
  - ELECTROCARDIOGRAM T WAVE INVERSION [None]
  - HEART RATE IRREGULAR [None]
  - MALAISE [None]
  - MYOCARDIAL ISCHAEMIA [None]
